FAERS Safety Report 4547779-6 (Version None)
Quarter: 2004Q4

REPORT INFORMATION
  Report Type: 
  Country: None (occurrence: None)
  Receive Date: 20041223
  Receipt Date: 20040827
  Transmission Date: 20050328
  Serious: No
  Sender: FDA-Public Use
  Company Number: US-JNJFOC-20040809942

PATIENT
  Age: 31 Year
  Sex: Female
  Weight: 50.8029 kg

DRUGS (2)
  1. ORTHO EVRA [Suspect]
     Indication: CONTRACEPTION
     Dosage: 1 DOSE (S), 3 IN 4 WEEK, TRANSDERMAL
     Route: 062
     Dates: start: 20040822
  2. PAIN PILLS (ANALGESICS) [Concomitant]

REACTIONS (3)
  - ABDOMINAL DISTENSION [None]
  - NAUSEA [None]
  - WEIGHT INCREASED [None]
